FAERS Safety Report 6027500-5 (Version None)
Quarter: 2009Q1

REPORT INFORMATION
  Report Type: 
  Country: None (occurrence: None)
  Receive Date: 20090105
  Receipt Date: 20081224
  Transmission Date: 20090719
  Serious: Yes (Death)
  Sender: FDA-Public Use
  Company Number: GB-ROCHE-605115

PATIENT
  Age: 77 Year
  Sex: Male

DRUGS (8)
  1. CAPECITABINE [Suspect]
     Route: 048
  2. ASPIRIN [Concomitant]
     Route: 048
  3. CO-AMILOFRUSE [Concomitant]
  4. DIGOXIN [Concomitant]
     Route: 048
  5. ISMN [Concomitant]
     Route: 048
  6. OMEPRAZOLE [Concomitant]
  7. ALBUTEROL SULFATE [Concomitant]
     Route: 055
  8. SIMVASTATIN [Concomitant]

REACTIONS (1)
  - MUCOSAL INFLAMMATION [None]
